FAERS Safety Report 13249605 (Version 1)
Quarter: 2017Q1

REPORT INFORMATION
  Report Type: Spontaneous
  Country: US (occurrence: US)
  Receive Date: 20170218
  Receipt Date: 20170218
  Transmission Date: 20170428
  Serious: No
  Sender: FDA-Public Use
  Company Number: US-ALLERGAN-1670203US

PATIENT
  Sex: Female

DRUGS (4)
  1. RESTASIS [Suspect]
     Active Substance: CYCLOSPORINE
     Dosage: UNK, TWICE DAILY
     Route: 047
  2. RESTASIS [Suspect]
     Active Substance: CYCLOSPORINE
     Indication: DRY EYE
     Dosage: UNK, TWICE DAILY
     Route: 047
     Dates: start: 20160505
  3. THERATEARS [Concomitant]
     Active Substance: CARBOXYMETHYLCELLULOSE SODIUM
     Indication: DRY EYE
     Dosage: UNK UNK, QD
     Route: 047
  4. EYE NUTRITION CAPSULES [Concomitant]
     Indication: DRY EYE
     Dosage: UNK, QD
     Route: 048

REACTIONS (6)
  - Skin fissures [Not Recovered/Not Resolved]
  - Erythema [Recovered/Resolved]
  - Skin oedema [Not Recovered/Not Resolved]
  - Accidental exposure to product [Unknown]
  - Drug prescribing error [Unknown]
  - Wrong technique in product usage process [Unknown]
